FAERS Safety Report 8407229-6 (Version None)
Quarter: 2012Q2

REPORT INFORMATION
  Report Type: 
  Country: None (occurrence: None)
  Receive Date: 20120604
  Receipt Date: 20120524
  Transmission Date: 20120825
  Serious: Yes (Other)
  Sender: FDA-Public Use
  Company Number: FR-ASTRAZENECA-2012SE34100

PATIENT
  Sex: Female

DRUGS (3)
  1. TERCIAN [Concomitant]
  2. QUETIAPINE FUMARATE [Suspect]
     Route: 048
     Dates: start: 20120501, end: 20120501
  3. ESCITALOPRAM [Concomitant]

REACTIONS (2)
  - HYPOTENSION [None]
  - HEPATITIS [None]
